FAERS Safety Report 13487555 (Version 1)
Quarter: 2017Q2

REPORT INFORMATION
  Report Type: Spontaneous
  Country: US (occurrence: US)
  Receive Date: 20170426
  Receipt Date: 20170426
  Transmission Date: 20170830
  Serious: No
  Sender: FDA-Public Use
  Company Number: US-ALKERMES INC.-ALK-2016-003211

PATIENT
  Age: 77 Year
  Sex: Female

DRUGS (3)
  1. VIVITROL [Suspect]
     Active Substance: NALTREXONE
     Indication: ALCOHOLISM
     Dosage: 380 MG, QMO
     Route: 030
     Dates: start: 201609
  2. OTHER THERAPEUTIC PRODUCTS [Concomitant]
     Active Substance: UNSPECIFIED INGREDIENT
     Indication: HYPERTENSION
     Route: 065
  3. OTHER THERAPEUTIC PRODUCTS [Concomitant]
     Active Substance: UNSPECIFIED INGREDIENT
     Indication: MENTAL DISORDER
     Route: 065

REACTIONS (4)
  - Alcohol use [Unknown]
  - Inadequate diet [Unknown]
  - Dyspnoea [Unknown]
  - Tremor [Unknown]

NARRATIVE: CASE EVENT DATE: 2016
